FAERS Safety Report 23200605 (Version 3)
Quarter: 2023Q4

REPORT INFORMATION
  Report Type: Other
  Country: US (occurrence: US)
  Receive Date: 20231118
  Receipt Date: 20231224
  Transmission Date: 20240109
  Serious: No
  Sender: FDA-Public Use
  Company Number: US-TRAVERE-2023TVT00648

PATIENT
  Age: 37 Year
  Sex: Female

DRUGS (2)
  1. FILSPARI [Suspect]
     Active Substance: SPARSENTAN
     Indication: IgA nephropathy
     Route: 048
     Dates: start: 20231015
  2. FILSPARI [Suspect]
     Active Substance: SPARSENTAN
     Route: 048
     Dates: start: 20231022

REACTIONS (8)
  - Headache [Recovered/Resolved]
  - Appetite disorder [Unknown]
  - Dizziness [None]
  - Gout [Unknown]
  - Blood pressure increased [Unknown]
  - Weight increased [Unknown]
  - Fluid retention [Unknown]
  - Nausea [None]

NARRATIVE: CASE EVENT DATE: 20231015
